FAERS Safety Report 5722661-7 (Version None)
Quarter: 2008Q2

REPORT INFORMATION
  Report Type: 
  Country: None (occurrence: None)
  Receive Date: 20080429
  Receipt Date: 20071121
  Transmission Date: 20081010
  Serious: No
  Sender: FDA-Public Use
  Company Number: US-ASTRAZENECA-2007UW26840

PATIENT
  Age: 84 Year
  Sex: Female
  Weight: 53.5 kg

DRUGS (2)
  1. NEXIUM [Suspect]
     Indication: GASTROOESOPHAGEAL REFLUX DISEASE
     Route: 048
  2. SLEEPING PILL [Concomitant]
     Indication: SLEEP DISORDER

REACTIONS (2)
  - ANORECTAL DISORDER [None]
  - BURNING SENSATION [None]
